FAERS Safety Report 19862169 (Version 3)
Quarter: 2022Q1

REPORT INFORMATION
  Report Type: Report from Study
  Country: US (occurrence: US)
  Receive Date: 20210921
  Receipt Date: 20220128
  Transmission Date: 20220424
  Serious: No
  Sender: FDA-Public Use
  Company Number: NVSC2021US213376

PATIENT
  Age: 62 Year
  Sex: Male

DRUGS (1)
  1. ENTRESTO [Suspect]
     Active Substance: SACUBITRIL\VALSARTAN
     Indication: Cardiac failure
     Dosage: 1 DOSAGE FORM, BID (24.26 MG 2 TABS TWICE A DAY)
     Route: 048
     Dates: start: 202107

REACTIONS (3)
  - Sinusitis [Unknown]
  - Cough [Unknown]
  - Blood potassium increased [Unknown]

NARRATIVE: CASE EVENT DATE: 20210901
